FAERS Safety Report 4417570-X (Version None)
Quarter: 2004Q2

REPORT INFORMATION
  Report Type: 
  Country: None (occurrence: None)
  Receive Date: 20040625
  Receipt Date: 20040412
  Transmission Date: 20050107
  Serious: No
  Sender: FDA-Public Use
  Company Number: 205890

PATIENT
  Age: 75 Year
  Sex: Male

DRUGS (4)
  1. AVASTIN [Suspect]
     Indication: COLORECTAL CANCER METASTATIC
     Dosage: 350 MG, Q2W, INTRAVENOUS
     Route: 042
     Dates: start: 20040325
  2. FLUOROURACIL [Suspect]
     Indication: COLORECTAL CANCER
     Dosage: 750 MG, Q3W, INTRAVENOUS
     Route: 042
     Dates: start: 20040325
  3. LEUCOVORIN CALCIUM [Suspect]
     Indication: COLORECTAL CANCER METASTATIC
     Dosage: 36 MG, Q3W, INTRAVENOUS
     Route: 042
     Dates: start: 20040325
  4. GLIPIZIDE [Concomitant]

REACTIONS (1)
  - OEDEMA PERIPHERAL [None]
